FAERS Safety Report 24971472 (Version 1)
Quarter: 2025Q1

REPORT INFORMATION
  Report Type: Spontaneous
  Country: US (occurrence: US)
  Receive Date: 20250214
  Receipt Date: 20250214
  Transmission Date: 20250408
  Serious: No
  Sender: MYLAN
  Company Number: US-MYLANLABS-2025M1010282

PATIENT
  Age: 77 Year
  Sex: Male
  Weight: 95.3 kg

DRUGS (1)
  1. EPLERENONE [Suspect]
     Active Substance: EPLERENONE
     Indication: Polyuria
     Dosage: 12.5 MILLIGRAM, QD (ONCE DAILY)
     Route: 048

REACTIONS (1)
  - Drug ineffective for unapproved indication [Unknown]
